FAERS Safety Report 16728818 (Version 17)
Quarter: 2020Q1

REPORT INFORMATION
  Report Type: Spontaneous
  Country: CA (occurrence: CA)
  Receive Date: 20190822
  Receipt Date: 20200317
  Transmission Date: 20200409
  Serious: Yes (Hospitalization, Other)
  Sender: FDA-Public Use
  Company Number: CA-PFIZER INC-2019354320

PATIENT
  Age: 49 Year
  Sex: Male

DRUGS (23)
  1. PREDNISONE. [Concomitant]
     Active Substance: PREDNISONE
     Dosage: 15-20, DAILY
     Route: 048
     Dates: start: 201710, end: 202001
  2. K-DUR [Concomitant]
     Active Substance: POTASSIUM CHLORIDE
     Dosage: UNK, DAILY
     Route: 048
  3. XELJANZ [Suspect]
     Active Substance: TOFACITINIB CITRATE
     Dosage: 1 DF, 1X/DAY, (1 PILL A DAY (MOST PROBABLY 5 MG TABLETS)
     Route: 048
  4. XELJANZ [Suspect]
     Active Substance: TOFACITINIB CITRATE
     Indication: COLITIS ULCERATIVE
     Dosage: UNK
  5. XELJANZ [Suspect]
     Active Substance: TOFACITINIB CITRATE
     Dosage: 5 MG, 2X/DAY
     Route: 048
  6. ACETAMINOPHEN. [Concomitant]
     Active Substance: ACETAMINOPHEN
     Dosage: UNK, DAILY (4 TO 6 TABLETS DAILY)
     Route: 048
  7. PERINDOPRIL [Concomitant]
     Active Substance: PERINDOPRIL
     Indication: MYOCARDIAL ISCHAEMIA
     Dosage: 4 MG, DAILY
     Route: 048
     Dates: start: 201908
  8. MAGNESIUM-ROUGIER [Concomitant]
     Active Substance: MAGNESIUM GLUCEPTATE
     Dosage: 30 ML, DAILY
     Route: 048
  9. SOLU-MEDROL [Concomitant]
     Active Substance: METHYLPREDNISOLONE SODIUM SUCCINATE
     Dosage: UNK
     Route: 042
     Dates: start: 2019, end: 20190808
  10. OMEPRAZOLE. [Concomitant]
     Active Substance: OMEPRAZOLE
     Dosage: 20 MG, (AM)
     Route: 048
  11. PREDNISONE. [Concomitant]
     Active Substance: PREDNISONE
     Dosage: 40 MG, TAPERING BY 5 MG EVERY WEEK
     Route: 048
     Dates: start: 201908, end: 2019
  12. HCTZ [Concomitant]
     Active Substance: HYDROCHLOROTHIAZIDE
     Dosage: 25 MG, DAILY
     Route: 048
  13. XELJANZ [Suspect]
     Active Substance: TOFACITINIB CITRATE
     Dosage: 10 MG, 2X/DAY
     Route: 048
     Dates: start: 20190903
  14. PREDNISONE. [Concomitant]
     Active Substance: PREDNISONE
     Indication: COLITIS ULCERATIVE
     Dosage: 40 MG, TAPERING BY 5 MG EVERY WEEK
     Route: 048
     Dates: start: 201908
  15. XELJANZ [Suspect]
     Active Substance: TOFACITINIB CITRATE
     Dosage: UNK
     Route: 048
     Dates: start: 2019
  16. PREDNISONE. [Concomitant]
     Active Substance: PREDNISONE
     Dosage: 40 MG, DAILY (FOR 1 WEEK THEN TAPER BY 5 MG EVERY 2 WEEKS)
     Route: 048
  17. VALSARTAN HCTZ [Concomitant]
     Active Substance: HYDROCHLOROTHIAZIDE\VALSARTAN
     Dosage: UNK (160 + 25 MG AM)
     Route: 048
  18. ENTYVIO [Concomitant]
     Active Substance: VEDOLIZUMAB
     Dosage: 300 MG, UNK (300 MG, Q 4 WEEKS)(LAST DOSE 25JUL2019)
     Route: 042
  19. BRIMONIDINE/BRINZOLAMIDE [Concomitant]
     Active Substance: BRIMONIDINE TARTRATE\BRINZOLAMIDE
     Dosage: 1 GTT, 2X/DAY (1 DROP IN BOTH EYES, 2X/DAY (0.2+1%))
     Route: 047
  20. XELJANZ [Suspect]
     Active Substance: TOFACITINIB CITRATE
     Dosage: 10 MG, 2X/DAY
     Route: 048
     Dates: start: 20190827
  21. ROSUVASTATIN. [Concomitant]
     Active Substance: ROSUVASTATIN
     Indication: MYOCARDIAL ISCHAEMIA
     Dosage: 10 MG, DAILY
     Route: 048
     Dates: start: 201905
  22. ACETYLSALICYLIC ACID ENTERIC COATED [Concomitant]
     Active Substance: ASPIRIN
     Dosage: 80 MG, DAILY
     Route: 048
  23. BIMATOPROST. [Concomitant]
     Active Substance: BIMATOPROST
     Dosage: UNK (1 DROP IN BOTH EYES AT BEDTIME)
     Route: 047

REACTIONS (15)
  - Cardiac failure congestive [Unknown]
  - Dyspnoea [Unknown]
  - Frequent bowel movements [Unknown]
  - Acute myocardial infarction [Recovered/Resolved]
  - Loss of personal independence in daily activities [Unknown]
  - Pyrexia [Recovered/Resolved]
  - Myocardial ischaemia [Recovered/Resolved]
  - Angina pectoris [Recovered/Resolved]
  - Fatigue [Unknown]
  - Colitis ulcerative [Recovering/Resolving]
  - Cardiac arrest [Unknown]
  - C-reactive protein increased [Unknown]
  - Nasopharyngitis [Unknown]
  - Peripheral swelling [Unknown]
  - Decreased appetite [Unknown]

NARRATIVE: CASE EVENT DATE: 20190806
